FAERS Safety Report 20848997 (Version 12)
Quarter: 2024Q3

REPORT INFORMATION
  Report Type: Report from Study
  Country: FR (occurrence: FR)
  Receive Date: 20220519
  Receipt Date: 20240919
  Transmission Date: 20241017
  Serious: Yes (Life-Threatening, Hospitalization, Other)
  Sender: NOVARTIS
  Company Number: FR-NOVARTISPH-NVSC2021FR217849

PATIENT
  Sex: Male
  Weight: 80 kg

DRUGS (28)
  1. TAFINLAR [Suspect]
     Active Substance: DABRAFENIB MESYLATE
     Indication: Malignant melanoma
     Dosage: 300 MG
     Route: 048
     Dates: start: 20200909, end: 20201026
  2. TAFINLAR [Suspect]
     Active Substance: DABRAFENIB MESYLATE
     Dosage: 200 MG
     Route: 048
     Dates: start: 20201030, end: 20201209
  3. TAFINLAR [Suspect]
     Active Substance: DABRAFENIB MESYLATE
     Dosage: 150 MG
     Route: 048
     Dates: start: 20201223, end: 20220628
  4. MEKINIST [Suspect]
     Active Substance: TRAMETINIB DIMETHYL SULFOXIDE
     Indication: Malignant melanoma
     Dosage: 2 MG, QD
     Route: 048
     Dates: start: 20200909, end: 20201026
  5. MEKINIST [Suspect]
     Active Substance: TRAMETINIB DIMETHYL SULFOXIDE
     Dosage: 1.5 MG
     Route: 048
     Dates: start: 20201030, end: 20201209
  6. MEKINIST [Suspect]
     Active Substance: TRAMETINIB DIMETHYL SULFOXIDE
     Dosage: 1 MG
     Route: 048
     Dates: start: 20201223, end: 20220628
  7. METFORMIN\SITAGLIPTIN [Concomitant]
     Active Substance: METFORMIN\SITAGLIPTIN
     Indication: Diabetes mellitus
     Dosage: 1 DOSAGE FORM, BID
     Route: 048
  8. REPAGLINIDE [Concomitant]
     Active Substance: REPAGLINIDE
     Indication: Diabetes mellitus
     Dosage: UNK (3 PILLS ON MORNING, 2 PILLS ON NOON, 1 PILL ON EVENING)
     Route: 048
  9. OXAZEPAM [Concomitant]
     Active Substance: OXAZEPAM
     Indication: Anxiety
     Dosage: 10 MG, BID
     Route: 048
  10. ELIQUIS [Concomitant]
     Active Substance: APIXABAN
     Indication: Prophylaxis
     Dosage: 5 MG, BID
     Route: 048
  11. ELIQUIS [Concomitant]
     Active Substance: APIXABAN
     Dosage: 50 MG, BID
     Route: 048
  12. TAHOR [Concomitant]
     Active Substance: ATORVASTATIN CALCIUM
     Indication: Hypercholesterolaemia
     Dosage: 10 MG, QD
     Route: 048
  13. PANTOPRAZOLE [Concomitant]
     Active Substance: PANTOPRAZOLE
     Indication: Gastrooesophageal reflux disease
     Dosage: 40 MG, QD
     Route: 048
  14. SEREVENT DISKUS [Concomitant]
     Active Substance: SALMETEROL XINAFOATE
     Indication: Product used for unknown indication
     Dosage: UNK
     Route: 065
  15. FLUTICASONE PROPIONATE [Concomitant]
     Active Substance: FLUTICASONE PROPIONATE
     Indication: Product used for unknown indication
     Dosage: UNK
     Route: 065
  16. PIPERACILLIN SODIUM\TAZOBACTAM SODIUM [Concomitant]
     Active Substance: PIPERACILLIN SODIUM\TAZOBACTAM SODIUM
     Indication: Urinary tract infection
     Dosage: UNK
     Route: 065
  17. BACTRIM [Concomitant]
     Active Substance: SULFAMETHOXAZOLE\TRIMETHOPRIM
     Indication: Urinary tract infection
     Dosage: UNK
     Route: 065
  18. POTASSIUM CHLORIDE [Concomitant]
     Active Substance: POTASSIUM CHLORIDE
     Indication: Septic shock
     Dosage: 600 MG, BID
     Route: 048
     Dates: start: 20220712
  19. POTASSIUM CHLORIDE [Concomitant]
     Active Substance: POTASSIUM CHLORIDE
     Indication: Hypokalaemia
  20. METFORMIN HYDROCHLORIDE [Concomitant]
     Active Substance: METFORMIN HYDROCHLORIDE
     Indication: Diabetes mellitus
     Dosage: 1000 MG, BID
     Route: 048
     Dates: start: 20220503
  21. ENCORAFENIB [Concomitant]
     Active Substance: ENCORAFENIB
     Indication: Malignant melanoma
     Dosage: 225 MG, QD
     Route: 048
     Dates: start: 20220629
  22. BINIMETINIB [Concomitant]
     Active Substance: BINIMETINIB
     Indication: Malignant melanoma
     Dosage: 22.5 MG, BID
     Route: 048
     Dates: start: 20220628
  23. BISOPROLOL [Concomitant]
     Active Substance: BISOPROLOL\BISOPROLOL FUMARATE
     Indication: Hypertension
     Dosage: 2.5 MG, QD
     Route: 048
     Dates: start: 20220622
  24. FOLIC ACID [Concomitant]
     Active Substance: FOLIC ACID
     Indication: Folate deficiency
     Dosage: 5 MG, BID
     Route: 048
     Dates: start: 20220623
  25. TAMSULOSIN HYDROCHLORIDE [Concomitant]
     Active Substance: TAMSULOSIN HYDROCHLORIDE
     Indication: Benign prostatic hyperplasia
     Dosage: 0.4 MG, QD
     Route: 048
     Dates: start: 20220624
  26. CHOLECALCIFEROL [Concomitant]
     Active Substance: CHOLECALCIFEROL
     Indication: Vitamin D deficiency
     Dosage: UNK
     Route: 065
     Dates: start: 20220713
  27. BIMATOPROST\TIMOLOL [Concomitant]
     Active Substance: BIMATOPROST\TIMOLOL
     Indication: Product used for unknown indication
     Dosage: 1 DRP
     Route: 065
  28. AZARGA [Concomitant]
     Active Substance: BRINZOLAMIDE\TIMOLOL MALEATE
     Indication: Product used for unknown indication
     Dosage: 1 DRP
     Route: 065

REACTIONS (21)
  - Pyelonephritis [Recovered/Resolved with Sequelae]
  - Renal failure [Recovered/Resolved]
  - Metabolic acidosis [Recovered/Resolved]
  - Pyrexia [Recovered/Resolved]
  - General physical health deterioration [Unknown]
  - Tachycardia [Unknown]
  - Dysuria [Unknown]
  - Pyrexia [Unknown]
  - Diarrhoea [Unknown]
  - Dyspnoea [Unknown]
  - Septic shock [Recovered/Resolved with Sequelae]
  - Contrast media allergy [Recovered/Resolved]
  - Pneumonia [Recovered/Resolved]
  - Productive cough [Unknown]
  - Rales [Unknown]
  - Wheezing [Unknown]
  - Chills [Unknown]
  - Pyelonephritis [Unknown]
  - Septic shock [Unknown]
  - Pyrexia [Recovered/Resolved]
  - Fatigue [Not Recovered/Not Resolved]

NARRATIVE: CASE EVENT DATE: 20201024
